FAERS Safety Report 15026821 (Version 4)
Quarter: 2018Q4

REPORT INFORMATION
  Report Type: Spontaneous
  Country: AT (occurrence: AT)
  Receive Date: 20180619
  Receipt Date: 20181009
  Transmission Date: 20190204
  Serious: Yes (Other)
  Sender: FDA-Public Use
  Company Number: AT-BEH-2016062920

PATIENT
  Age: 26 Year
  Sex: Male
  Weight: 90 kg

DRUGS (2)
  1. PRIVIGEN [Suspect]
     Active Substance: HUMAN IMMUNOGLOBULIN G
     Indication: SYSTEMIC LUPUS ERYTHEMATOSUS
     Dosage: 36 G, OD
     Route: 042
     Dates: start: 20160315, end: 20160319
  2. PRIVIGEN [Suspect]
     Active Substance: HUMAN IMMUNOGLOBULIN G
     Indication: VASCULITIS

REACTIONS (8)
  - Reticulocytosis [Unknown]
  - Headache [Unknown]
  - Nausea [Unknown]
  - Haematemesis [Unknown]
  - Haemolytic anaemia [Unknown]
  - Haemoglobinuria [Unknown]
  - Haematochezia [Unknown]
  - Haemolysis [Unknown]
